FAERS Safety Report 7959464-9 (Version None)
Quarter: 2011Q4

REPORT INFORMATION
  Report Type: 
  Country: None (occurrence: None)
  Receive Date: 20111206
  Receipt Date: 20111130
  Transmission Date: 20120403
  Serious: No
  Sender: FDA-Public Use
  Company Number: US-PFIZER INC-2011292785

PATIENT
  Sex: Male
  Weight: 82.993 kg

DRUGS (6)
  1. KLOR-CON [Concomitant]
     Dosage: 10 MEQ, UNK
  2. VIAGRA [Suspect]
     Indication: ERECTILE DYSFUNCTION
     Dosage: 100 MG, AS NEEDED
     Route: 048
     Dates: start: 20111101
  3. LEVOTHYROXINE [Concomitant]
     Dosage: 150 UG, UNK
  4. LOSARTAN [Concomitant]
     Dosage: 100 MG, UNK
  5. HYDROCHLOROTHIAZIDE [Concomitant]
     Dosage: 25 MG, UNK
  6. SIMVASTATIN [Concomitant]
     Dosage: 20 MG, UNK

REACTIONS (1)
  - DYSGEUSIA [None]
